FAERS Safety Report 9957715 (Version 1)
Quarter: 2014Q1

REPORT INFORMATION
  Report Type: Report from Study
  Country: US (occurrence: US)
  Receive Date: 20140304
  Receipt Date: 20140304
  Transmission Date: 20141002
  Serious: No
  Sender: FDA-Public Use
  Company Number: US-ABBVIE-13P-163-1091897-00

PATIENT
  Age: 59 Year
  Sex: Female

DRUGS (20)
  1. HUMIRA [Suspect]
     Indication: RHEUMATOID ARTHRITIS
     Route: 058
     Dates: start: 201208, end: 201209
  2. DILTIAZEM [Concomitant]
     Indication: ATRIAL FLUTTER
  3. DILTIAZEM [Concomitant]
     Indication: HYPERTENSION
  4. ASACOL [Concomitant]
     Indication: COLITIS ULCERATIVE
  5. ENTOCORT EC [Concomitant]
     Indication: PRODUCT USED FOR UNKNOWN INDICATION
  6. FLUOXETINE [Concomitant]
     Indication: DEPRESSION
  7. CLONAZEPAM [Concomitant]
     Indication: ANXIETY
  8. ZOCOR [Concomitant]
     Indication: BLOOD CHOLESTEROL INCREASED
  9. METOPROLOL [Concomitant]
     Indication: HYPERTENSION
  10. PROTONIX [Concomitant]
     Indication: OESOPHAGEAL SPASM
  11. FOLIC ACID [Concomitant]
     Indication: SUPPLEMENTATION THERAPY
  12. TRAMADOL HCL [Concomitant]
     Indication: ARTHRALGIA
  13. OXYCODONE [Concomitant]
     Indication: ARTHRALGIA
  14. ACYCLOVIR [Concomitant]
     Indication: PRODUCT USED FOR UNKNOWN INDICATION
  15. DICYCLOMINE [Concomitant]
     Indication: PRODUCT USED FOR UNKNOWN INDICATION
  16. METHOCARBAMOL [Concomitant]
     Indication: MYALGIA
  17. ASPIRIN [Concomitant]
     Indication: PRODUCT USED FOR UNKNOWN INDICATION
  18. LASIX [Concomitant]
     Indication: HYPERTENSION
  19. VITAMIN C [Concomitant]
     Indication: SUPPLEMENTATION THERAPY
  20. MULTIVITAMIN [Concomitant]
     Indication: SUPPLEMENTATION THERAPY

REACTIONS (4)
  - Wound [Recovered/Resolved]
  - Localised infection [Recovered/Resolved]
  - Localised infection [Not Recovered/Not Resolved]
  - Localised infection [Recovered/Resolved]
